FAERS Safety Report 5989609-1 (Version None)
Quarter: 2008Q4

REPORT INFORMATION
  Report Type: 
  Country: None (occurrence: None)
  Receive Date: 20081208
  Receipt Date: 20081128
  Transmission Date: 20090506
  Serious: Yes (Disabling)
  Sender: FDA-Public Use
  Company Number: P-SEA76-11-208

PATIENT
  Sex: Female

DRUGS (1)
  1. SEASONALE [Suspect]

REACTIONS (1)
  - VISUAL ACUITY REDUCED [None]
